FAERS Safety Report 24549309 (Version 1)
Quarter: 2024Q4

REPORT INFORMATION
  Report Type: Spontaneous
  Country: CA (occurrence: CA)
  Receive Date: 20241025
  Receipt Date: 20241025
  Transmission Date: 20250114
  Serious: Yes (Life-Threatening)
  Sender: TEVA
  Company Number: CA-TEVA-VS-3256352

PATIENT
  Age: 17 Year
  Sex: Male
  Weight: 188 kg

DRUGS (9)
  1. FLUDARABINE [Suspect]
     Active Substance: FLUDARABINE PHOSPHATE
     Indication: Bone marrow transplant
     Route: 042
  2. VALACYCLOVIR [Concomitant]
     Active Substance: VALACYCLOVIR HYDROCHLORIDE
     Indication: Product used for unknown indication
     Route: 065
  3. FAMOTIDINE [Concomitant]
     Active Substance: FAMOTIDINE
     Indication: Product used for unknown indication
     Route: 065
  4. CYCLOPHOSPHAMIDE [Suspect]
     Active Substance: CYCLOPHOSPHAMIDE
     Indication: Bone marrow transplant
     Route: 042
  5. AMOXICILLIN [Concomitant]
     Active Substance: AMOXICILLIN
     Indication: Product used for unknown indication
     Route: 065
  6. ALEMTUZUMAB [Suspect]
     Active Substance: ALEMTUZUMAB
     Indication: Bone marrow transplant
     Dosage: DOSE FORM: SOLUTION INTRAVENOUS
     Route: 042
  7. ONDANSETRON [Concomitant]
     Active Substance: ONDANSETRON
     Indication: Product used for unknown indication
     Route: 065
  8. SIROLIMUS [Suspect]
     Active Substance: SIROLIMUS
     Indication: Bone marrow transplant
     Dosage: TIME INTERVAL: 0.33333333 DAYS
     Route: 048
  9. SIROLIMUS [Suspect]
     Active Substance: SIROLIMUS
     Indication: Bone marrow transplant
     Route: 048

REACTIONS (5)
  - Aplastic anaemia [Unknown]
  - Skin reaction [Unknown]
  - Febrile neutropenia [Unknown]
  - Platelet count increased [Unknown]
  - White blood cell count increased [Unknown]
